FAERS Safety Report 14099816 (Version 1)
Quarter: 2017Q4

REPORT INFORMATION
  Report Type: Other
  Country: US (occurrence: US)
  Receive Date: 20171017
  Receipt Date: 20171017
  Transmission Date: 20180321
  Serious: Yes (Hospitalization)
  Sender: FDA-Public Use
  Company Number: US-ALSI-201700365

PATIENT
  Age: 18 Year
  Sex: Male

DRUGS (1)
  1. OXYGEN USP [Suspect]
     Active Substance: OXYGEN
     Indication: ACCIDENTAL EXPOSURE TO PRODUCT
     Route: 061
     Dates: start: 20171006, end: 20171006

REACTIONS (4)
  - Thermal burn [Unknown]
  - Respiratory distress [Unknown]
  - Accident [None]
  - Accidental exposure to product [Unknown]

NARRATIVE: CASE EVENT DATE: 20171006
